FAERS Safety Report 10089943 (Version 1)
Quarter: 2014Q2

REPORT INFORMATION
  Report Type: Report from Study
  Country: US (occurrence: US)
  Receive Date: 20140421
  Receipt Date: 20140421
  Transmission Date: 20141212
  Serious: No
  Sender: FDA-Public Use
  Company Number: US-ABBVIE-13P-163-1169885-00

PATIENT
  Age: 11 Year
  Sex: Male
  Weight: 36.77 kg

DRUGS (6)
  1. LUPRON DEPOT-PED (3 MONTH) [Suspect]
     Indication: DELAYED PUBERTY
     Dates: start: 201305, end: 201308
  2. INTUNIV [Concomitant]
     Indication: ATTENTION DEFICIT/HYPERACTIVITY DISORDER
  3. ADDERALL [Concomitant]
     Indication: ATTENTION DEFICIT/HYPERACTIVITY DISORDER
  4. MELATONIN [Concomitant]
     Indication: INSOMNIA
  5. OMNITROPE [Concomitant]
     Indication: DWARFISM
  6. HYDROXYZINE [Concomitant]
     Indication: HYPERSENSITIVITY

REACTIONS (6)
  - Injection site mass [Recovered/Resolved]
  - Vitamin D decreased [Unknown]
  - Body height decreased [Not Recovered/Not Resolved]
  - Injection site reaction [Recovered/Resolved]
  - Injection site warmth [Recovered/Resolved]
  - Musculoskeletal stiffness [Recovered/Resolved]
